FAERS Safety Report 21535082 (Version 1)
Quarter: 2022Q4

REPORT INFORMATION
  Report Type: Spontaneous
  Country: US (occurrence: None)
  Receive Date: 20221031
  Receipt Date: 20221031
  Transmission Date: 20230112
  Serious: Yes (Death, Life-Threatening, Hospitalization, Disabling)
  Sender: FDA-Public Use
  Company Number: None

PATIENT
  Age: 75 Year
  Sex: Male
  Weight: 61.3 kg

DRUGS (1)
  1. OPDUALAG [Suspect]
     Active Substance: NIVOLUMAB\RELATLIMAB-RMBW
     Indication: Metastatic malignant melanoma
     Dosage: OTHER FREQUENCY : EVERY 28 DAYS;?
     Route: 042
     Dates: start: 20220422, end: 20220812

REACTIONS (6)
  - Hyperglycaemia [None]
  - Hyperglycaemic hyperosmolar nonketotic syndrome [None]
  - Myopathy [None]
  - Myasthenic syndrome [None]
  - Disability [None]
  - Therapy cessation [None]

NARRATIVE: CASE EVENT DATE: 20220907
